FAERS Safety Report 18612707 (Version 1)
Quarter: 2020Q4

REPORT INFORMATION
  Report Type: Report from Study
  Country: GB (occurrence: GB)
  Receive Date: 20201214
  Receipt Date: 20201214
  Transmission Date: 20210114
  Serious: Yes (Other)
  Sender: FDA-Public Use
  Company Number: GB-FERRINGPH-2020FE08730

PATIENT
  Age: 9 Year
  Sex: Female

DRUGS (1)
  1. SOMATROPIN. [Suspect]
     Active Substance: SOMATROPIN
     Indication: MEDULLOBLASTOMA
     Route: 065

REACTIONS (3)
  - Medulloblastoma [Unknown]
  - Product use in unapproved indication [Unknown]
  - Off label use [Unknown]
